FAERS Safety Report 6469532-9 (Version None)
Quarter: 2009Q4

REPORT INFORMATION
  Report Type: 
  Country: None (occurrence: None)
  Receive Date: 20091203
  Receipt Date: 20091123
  Transmission Date: 20100525
  Serious: Yes (Hospitalization, Other)
  Sender: FDA-Public Use
  Company Number: US-PFIZER INC-2009304371

PATIENT
  Sex: Female
  Weight: 61.224 kg

DRUGS (4)
  1. LYRICA [Suspect]
     Indication: HYPOAESTHESIA
     Dosage: UNK 2X/DAY
     Route: 048
     Dates: start: 20080101, end: 20080101
  2. AMBIEN [Concomitant]
     Indication: SLEEP DISORDER
     Dosage: UNK
  3. LORCET-HD [Concomitant]
     Dosage: UNK
  4. TYLENOL W/ CODEINE NO. 3 [Concomitant]
     Dosage: UNK

REACTIONS (4)
  - KNEE OPERATION [None]
  - SPINAL OPERATION [None]
  - THROMBOPHLEBITIS [None]
  - WEIGHT INCREASED [None]
